FAERS Safety Report 15533306 (Version 1)
Quarter: 2018Q4

REPORT INFORMATION
  Report Type: Spontaneous
  Country: SE (occurrence: SE)
  Receive Date: 20181019
  Receipt Date: 20181019
  Transmission Date: 20190205
  Serious: Yes (Other)
  Sender: FDA-Public Use
  Company Number: SE-GLAXOSMITHKLINE-SE2018186841

PATIENT
  Age: 66 Year
  Sex: Female

DRUGS (1)
  1. VOXRA [Suspect]
     Active Substance: BUPROPION HYDROCHLORIDE
     Indication: DEPRESSION
     Dosage: 300 1 TABLET IN THE MORNING
     Route: 065
     Dates: start: 20130101, end: 20181005

REACTIONS (4)
  - Fatigue [Recovered/Resolved]
  - Mental impairment [Recovered/Resolved]
  - Depressed mood [Recovered/Resolved]
  - Blunted affect [Recovered/Resolved]

NARRATIVE: CASE EVENT DATE: 20180915
